FAERS Safety Report 14327080 (Version 1)
Quarter: 2017Q4

REPORT INFORMATION
  Report Type: Spontaneous
  Country: US (occurrence: US)
  Receive Date: 20171226
  Receipt Date: 20171226
  Transmission Date: 20180321
  Serious: Yes (Hospitalization)
  Sender: FDA-Public Use
  Company Number: None

PATIENT
  Age: 64 Year
  Sex: Male
  Weight: 105.7 kg

DRUGS (10)
  1. TADALAFIL [Concomitant]
     Active Substance: TADALAFIL
  2. ARGININE [Concomitant]
     Active Substance: ARGININE
  3. ENZALUTAMIDE [Suspect]
     Active Substance: ENZALUTAMIDE
     Indication: PROSTATE CANCER
     Route: 048
     Dates: start: 20170831, end: 20171211
  4. NYSTSATIN [Concomitant]
  5. METFORMIN [Concomitant]
     Active Substance: METFORMIN HYDROCHLORIDE
  6. MULTIVITAMIN [Concomitant]
     Active Substance: VITAMINS
  7. AMLODIPINE [Concomitant]
     Active Substance: AMLODIPINE BESYLATE
  8. NAPROXEN SODIUM. [Concomitant]
     Active Substance: NAPROXEN SODIUM
  9. LOSARTAN. [Concomitant]
     Active Substance: LOSARTAN
  10. CHOLECALCIFEROL [Concomitant]
     Active Substance: CHOLECALCIFEROL

REACTIONS (5)
  - Hydroureter [None]
  - Blood potassium decreased [None]
  - Acute kidney injury [None]
  - Nephrolithiasis [None]
  - Hydronephrosis [None]

NARRATIVE: CASE EVENT DATE: 20171220
